FAERS Safety Report 8802049 (Version 2)
Quarter: 2012Q4

REPORT INFORMATION
  Report Type: 
  Country: GR (occurrence: GR)
  Receive Date: 20120921
  Receipt Date: 20120925
  Transmission Date: 20130627
  Serious: Yes (Other)
  Sender: FDA-Public Use
  Company Number: GR-AMGEN-GRCSP2012059197

PATIENT
  Age: 84 Year
  Sex: Female

DRUGS (6)
  1. PROLIA [Suspect]
     Indication: OSTEOPOROSIS
     Dosage: 60 mg, q6mo
     Dates: start: 201104, end: 201112
  2. DIOVAN [Concomitant]
  3. AMLODIN [Concomitant]
  4. SALOSPIR [Concomitant]
  5. LOPRESSOR [Concomitant]
  6. LEXOTANIL [Concomitant]

REACTIONS (3)
  - Osteonecrosis of jaw [Unknown]
  - Tooth disorder [Unknown]
  - Incorrect route of drug administration [Unknown]
